FAERS Safety Report 8369408-6 (Version None)
Quarter: 2012Q2

REPORT INFORMATION
  Report Type: 
  Country: None (occurrence: None)
  Receive Date: 20120518
  Receipt Date: 20120511
  Transmission Date: 20120825
  Serious: Yes (Other)
  Sender: FDA-Public Use
  Company Number: JP-PFIZER INC-2012114918

PATIENT
  Sex: Female

DRUGS (1)
  1. ZITHROMAX [Suspect]
     Indication: TOOTH EXTRACTION
     Dosage: 500 MG, 1X/DAY
     Route: 048
     Dates: start: 20120510

REACTIONS (3)
  - LOSS OF CONSCIOUSNESS [None]
  - FEELING ABNORMAL [None]
  - SYNCOPE [None]
